FAERS Safety Report 8229777-4 (Version None)
Quarter: 2012Q1

REPORT INFORMATION
  Report Type: 
  Country: None (occurrence: None)
  Receive Date: 20120322
  Receipt Date: 20120119
  Transmission Date: 20120608
  Serious: No
  Sender: FDA-Public Use
  Company Number: US-AMGEN-USASP2011063929

PATIENT
  Age: 59 Year
  Sex: Female
  Weight: 62.585 kg

DRUGS (6)
  1. CALCIUM CARBONATE [Concomitant]
  2. METHOTREXATE SODIUM [Concomitant]
     Dosage: 8 TABLETS (20 MG) BY ORAL ROUTE ONLY ONE DAY EVERY WEEK
     Route: 048
  3. ENBREL [Suspect]
     Indication: RHEUMATOID ARTHRITIS
     Dosage: 50 MG, QWK
     Dates: start: 20111019
  4. PREDNISONE TAB [Concomitant]
     Dosage: 1 ML, BY ORAL ROUTE 4 TIMES EVERY DAY.
     Route: 048
  5. FOSAMAX [Concomitant]
     Dosage: 70 MG, QWK
     Route: 048
  6. VITAMIN D [Concomitant]

REACTIONS (1)
  - INJECTION SITE PAIN [None]
